FAERS Safety Report 7939886-2 (Version None)
Quarter: 2011Q4

REPORT INFORMATION
  Report Type: 
  Country: None (occurrence: None)
  Receive Date: 20111125
  Receipt Date: 20110911
  Transmission Date: 20120403
  Serious: No
  Sender: FDA-Public Use
  Company Number: US-BAYER-2011-089886

PATIENT
  Sex: Female

DRUGS (3)
  1. SINUS/ALLERGY MED [Concomitant]
  2. ALEVE (CAPLET) [Suspect]
     Indication: HEADACHE
     Dosage: UNK
     Dates: start: 20110901
  3. TYLENOL 1 [Concomitant]

REACTIONS (1)
  - HEADACHE [None]
